FAERS Safety Report 21063468 (Version 4)
Quarter: 2022Q4

REPORT INFORMATION
  Report Type: Report from Study
  Country: CA (occurrence: CA)
  Receive Date: 20220711
  Receipt Date: 20221025
  Transmission Date: 20230113
  Serious: Yes (Hospitalization, Other)
  Sender: FDA-Public Use
  Company Number: CA-NOVARTISPH-NVSC2022CA009569

PATIENT
  Sex: Female

DRUGS (3)
  1. SANDOSTATIN LAR DEPOT [Suspect]
     Active Substance: OCTREOTIDE ACETATE
     Indication: Acromegaly
     Dosage: 30 MG, Q4W (4 WEEKS)
     Route: 030
     Dates: start: 20211217
  2. SANDOSTATIN LAR DEPOT [Suspect]
     Active Substance: OCTREOTIDE ACETATE
  3. SANDOSTATIN LAR DEPOT [Suspect]
     Active Substance: OCTREOTIDE ACETATE

REACTIONS (10)
  - Bacteraemia [Unknown]
  - Loss of consciousness [Unknown]
  - Blood pressure increased [Unknown]
  - Device related infection [Unknown]
  - Dysstasia [Unknown]
  - Fall [Unknown]
  - Balance disorder [Recovered/Resolved]
  - Cyanosis [Recovered/Resolved]
  - Hypoaesthesia [Unknown]
  - Asthenia [Recovered/Resolved]

NARRATIVE: CASE EVENT DATE: 20220101
